FAERS Safety Report 12471163 (Version 1)
Quarter: 2016Q2

REPORT INFORMATION
  Report Type: Spontaneous
  Country: US (occurrence: None)
  Receive Date: 20160615
  Receipt Date: 20160615
  Transmission Date: 20160815
  Serious: No
  Sender: FDA-Public Use
  Company Number: None

PATIENT
  Age: 65 Year
  Sex: Female

DRUGS (9)
  1. METFORMIN [Concomitant]
     Active Substance: METFORMIN HYDROCHLORIDE
  2. HERCEPTIN [Concomitant]
     Active Substance: TRASTUZUMAB
  3. DILTIAZEM [Concomitant]
     Active Substance: DILTIAZEM
  4. IBRANCE [Suspect]
     Active Substance: PALBOCICLIB
     Indication: NEOPLASM MALIGNANT
     Dosage: 125MG QDX21D P.O.
     Route: 048
     Dates: start: 20160504
  5. FASLODEX [Concomitant]
     Active Substance: FULVESTRANT
  6. NEXIUM [Concomitant]
     Active Substance: ESOMEPRAZOLE MAGNESIUM
  7. IMODIUM [Concomitant]
     Active Substance: LOPERAMIDE HYDROCHLORIDE
  8. ZOMETA [Concomitant]
     Active Substance: ZOLEDRONIC ACID
  9. DIOVAN [Concomitant]
     Active Substance: VALSARTAN

REACTIONS (2)
  - Diarrhoea [None]
  - Alopecia [None]

NARRATIVE: CASE EVENT DATE: 20160613
